FAERS Safety Report 11269104 (Version 1)
Quarter: 2015Q3

REPORT INFORMATION
  Report Type: Spontaneous
  Country: US (occurrence: None)
  Receive Date: 20150710
  Receipt Date: 20150710
  Transmission Date: 20151125
  Serious: Yes (Other)
  Sender: FDA-Public Use
  Company Number: US-2015VAL000426

PATIENT
  Sex: Male

DRUGS (2)
  1. METOPROLOL TARTRATE. [Suspect]
     Active Substance: METOPROLOL TARTRATE
     Indication: CONDUCTION DISORDER
  2. LOPRESSOR [Suspect]
     Active Substance: METOPROLOL TARTRATE
     Indication: CONDUCTION DISORDER

REACTIONS (4)
  - Product quality issue [None]
  - Product substitution issue [None]
  - Drug ineffective [None]
  - Atrial fibrillation [None]
